FAERS Safety Report 8692414 (Version 2)
Quarter: 2014Q3

REPORT INFORMATION
  Report Type: Spontaneous
  Country: US (occurrence: US)
  Receive Date: 20120730
  Receipt Date: 20140808
  Transmission Date: 20150326
  Serious: Yes (Hospitalization, Other)
  Sender: FDA-Public Use
  Company Number: US-009507513-1207USA007489

PATIENT
  Sex: Female
  Weight: 106.12 kg

DRUGS (1)
  1. NUVARING [Suspect]
     Active Substance: ETHINYL ESTRADIOL\ETONOGESTREL
     Indication: CONTRACEPTION
     Dosage: 0.12-0.015 MG/24HR, INSERT 1 RING INTRAVAGINALLY FOR 3 WKS, AS DIRECTED
     Route: 067
     Dates: start: 20100226, end: 20100330

REACTIONS (3)
  - Anxiety [Unknown]
  - Pulmonary embolism [Recovering/Resolving]
  - Pain in extremity [Unknown]

NARRATIVE: CASE EVENT DATE: 20100820
